FAERS Safety Report 21000270 (Version 1)
Quarter: 2022Q2

REPORT INFORMATION
  Report Type: Spontaneous
  Country: GB (occurrence: GB)
  Receive Date: 20220623
  Receipt Date: 20220623
  Transmission Date: 20220721
  Serious: Yes (Hospitalization)
  Sender: FDA-Public Use
  Company Number: GB-MHRA-MED-202206091638388420-ZKLVG

PATIENT
  Age: 70 Year
  Sex: Female
  Weight: 90 kg

DRUGS (3)
  1. ABEMACICLIB [Suspect]
     Active Substance: ABEMACICLIB
     Indication: Product used for unknown indication
     Dosage: 50 MG, BID
     Route: 065
     Dates: start: 20211223, end: 20220607
  2. LETROZOLE [Concomitant]
     Active Substance: LETROZOLE
     Indication: Breast cancer
     Dosage: UNK UNK, UNKNOWN
     Dates: start: 20210806
  3. ZOMETA [ZOLEDRONIC ACID MONOHYDRATE] [Concomitant]
     Indication: Breast cancer stage IV
     Dosage: UNK UNK, UNKNOWN
     Dates: start: 20210806

REACTIONS (1)
  - Perforation [Not Recovered/Not Resolved]

NARRATIVE: CASE EVENT DATE: 20220607
